FAERS Safety Report 5992919-5 (Version None)
Quarter: 2008Q4

REPORT INFORMATION
  Report Type: 
  Country: None (occurrence: None)
  Receive Date: 20081212
  Receipt Date: 20081202
  Transmission Date: 20090506
  Serious: Yes (Other)
  Sender: FDA-Public Use
  Company Number: GB-RANBAXY-2008RR-19777

PATIENT
  Age: 7 Year
  Sex: Male

DRUGS (2)
  1. FLUOXETINE [Suspect]
     Indication: AUTISM
     Dosage: 4 MG, UNK
     Route: 048
     Dates: start: 20081115, end: 20081115
  2. VENTOLIN [Concomitant]
     Dosage: UNK

REACTIONS (3)
  - EYE SWELLING [None]
  - RHINORRHOEA [None]
  - WHEEZING [None]
